FAERS Safety Report 5883998-4 (Version None)
Quarter: 2008Q3

REPORT INFORMATION
  Report Type: 
  Country: None (occurrence: None)
  Receive Date: 20080915
  Receipt Date: 20080903
  Transmission Date: 20090109
  Serious: Yes (Other)
  Sender: FDA-Public Use
  Company Number: BR-ROCHE-584933

PATIENT
  Age: 43 Year
  Sex: Female
  Weight: 56 kg

DRUGS (3)
  1. RIVOTRIL [Suspect]
     Indication: ANXIETY
     Route: 048
     Dates: start: 20080817
  2. RIVOTRIL [Concomitant]
     Route: 048
     Dates: start: 20070101, end: 20080816
  3. TYLENOL (CAPLET) [Concomitant]
     Indication: MIGRAINE
     Dosage: 2 TO 3 TABLETS AS NEEDED.
     Route: 048

REACTIONS (4)
  - CYST [None]
  - DRUG INEFFECTIVE [None]
  - HEADACHE [None]
  - PALPITATIONS [None]
